FAERS Safety Report 9477078 (Version 2)
Quarter: 2014Q2

REPORT INFORMATION
  Report Type: Spontaneous
  Country: US (occurrence: US)
  Receive Date: 20130826
  Receipt Date: 20140618
  Transmission Date: 20141212
  Serious: Yes (Hospitalization, Disabling, Other)
  Sender: FDA-Public Use
  Company Number: US-009507513-1308USA009529

PATIENT
  Sex: Female
  Weight: 81.18 kg

DRUGS (4)
  1. NUVARING [Suspect]
     Indication: DYSMENORRHOEA
     Dosage: UNK
     Route: 067
     Dates: start: 2007, end: 20101115
  2. NUVARING [Suspect]
     Indication: OVULATION PAIN
  3. NUVARING [Suspect]
     Indication: MENORRHAGIA
  4. ALBUTEROL [Concomitant]
     Indication: ASTHMA
     Dosage: UNK, PRN
     Route: 055

REACTIONS (27)
  - Fibula fracture [Recovered/Resolved]
  - Rotator cuff repair [Unknown]
  - Deep vein thrombosis [Unknown]
  - Muscle strain [Unknown]
  - Antiphospholipid syndrome [Unknown]
  - Thrombosis [Unknown]
  - Migraine [Unknown]
  - Palpitations [Unknown]
  - Off label use [Recovered/Resolved]
  - Anxiety [Unknown]
  - Colon adenoma [Unknown]
  - Ovarian cyst [Unknown]
  - Device expulsion [Unknown]
  - Stress urinary incontinence [Not Recovered/Not Resolved]
  - Uterovaginal prolapse [Not Recovered/Not Resolved]
  - Haemorrhoids [Unknown]
  - Malaise [Unknown]
  - Fatigue [Unknown]
  - Anal polyp [Unknown]
  - Rectal polyp [Unknown]
  - Abdominal pain [Unknown]
  - Rectocele [Unknown]
  - Hot flush [Recovering/Resolving]
  - Mood swings [Unknown]
  - Amenorrhoea [Not Recovered/Not Resolved]
  - Uterovaginal prolapse [Unknown]
  - Urge incontinence [Unknown]
